FAERS Safety Report 26075322 (Version 2)
Quarter: 2025Q4

REPORT INFORMATION
  Report Type: Spontaneous
  Country: CA (occurrence: CA)
  Receive Date: 20251121
  Receipt Date: 20251226
  Transmission Date: 20260118
  Serious: Yes (Hospitalization, Other)
  Sender: AMGEN
  Company Number: CA-AMGEN-CANSP2025224434

PATIENT
  Age: 4 Decade
  Sex: Female

DRUGS (6)
  1. CINACALCET HYDROCHLORIDE [Suspect]
     Active Substance: CINACALCET HYDROCHLORIDE
     Indication: Hypercalcaemia
     Dosage: 30 MILLIGRAM, BID (FOR 2 DAYS)
     Route: 065
  2. CINACALCET HYDROCHLORIDE [Suspect]
     Active Substance: CINACALCET HYDROCHLORIDE
     Indication: Hyperparathyroidism primary
  3. LABETALOL [Concomitant]
     Active Substance: LABETALOL
     Indication: Gestational hypertension
     Dosage: 200 MILLIGRAM
  4. CALCITONIN [Concomitant]
     Active Substance: CALCITONIN
     Indication: Hypercalcaemia
     Dosage: 100 INTERNATIONAL UNIT, BID (FOR 2 DAYS)
     Route: 058
  5. CALCITONIN [Concomitant]
     Active Substance: CALCITONIN
     Indication: Hyperparathyroidism primary
  6. BETAMETHASONE [Concomitant]
     Active Substance: BETAMETHASONE

REACTIONS (9)
  - Hungry bone syndrome [Recovered/Resolved]
  - Polyhydramnios [Unknown]
  - Premature rupture of membranes [Unknown]
  - Premature delivery [Unknown]
  - Pathological fracture [Unknown]
  - Nephrolithiasis [Unknown]
  - Fall [Unknown]
  - Drug ineffective [Unknown]
  - Maternal exposure during pregnancy [Unknown]
